FAERS Safety Report 6568278-6 (Version None)
Quarter: 2010Q1

REPORT INFORMATION
  Report Type: 
  Country: None (occurrence: None)
  Receive Date: 20100128
  Receipt Date: 20100114
  Transmission Date: 20100710
  Serious: Yes (Other)
  Sender: FDA-Public Use
  Company Number: 1000011443

PATIENT
  Age: 61 Year
  Sex: Male

DRUGS (9)
  1. ESCITALOPRAM [Suspect]
     Indication: DEPRESSION
     Dosage: 10 MG (10 MG, 1 IN 1 D), ORAL
     Route: 048
     Dates: start: 20070827, end: 20070901
  2. ESCITALOPRAM [Suspect]
     Indication: FATIGUE
     Dosage: 10 MG (10 MG, 1 IN 1 D), ORAL
     Route: 048
     Dates: start: 20070827, end: 20070901
  3. ESCITALOPRAM [Suspect]
     Indication: MIGRAINE WITH AURA
     Dosage: 10 MG (10 MG, 1 IN 1 D), ORAL
     Route: 048
     Dates: start: 20070827, end: 20070901
  4. PRIMOTESTON DEPOT [Concomitant]
  5. LEVAKSIN [Concomitant]
  6. TESTOSTERONE [Concomitant]
  7. VITAMIN B-12 [Concomitant]
  8. LAMICTAL [Concomitant]
  9. NEBIDO [Concomitant]

REACTIONS (10)
  - DAYDREAMING [None]
  - DECREASED APPETITE [None]
  - DISTURBANCE IN ATTENTION [None]
  - DIZZINESS [None]
  - DYSKINESIA [None]
  - ERECTILE DYSFUNCTION [None]
  - HYPOSMIA [None]
  - INSOMNIA [None]
  - PRURITUS [None]
  - SOCIAL AVOIDANT BEHAVIOUR [None]
